FAERS Safety Report 4528807-0 (Version None)
Quarter: 2004Q4

REPORT INFORMATION
  Report Type: 
  Country: None (occurrence: None)
  Receive Date: 20041216
  Receipt Date: 20041025
  Transmission Date: 20050328
  Serious: Yes (Other)
  Sender: FDA-Public Use
  Company Number: US-GLAXOSMITHKLINE-A0531192A

PATIENT
  Age: 72 Year
  Sex: Female

DRUGS (5)
  1. WELLBUTRIN [Suspect]
     Indication: DEPRESSION
     Route: 048
     Dates: start: 20040901
  2. TRILEPTAL [Concomitant]
  3. MYSOLINE [Concomitant]
  4. SYNTHROID [Concomitant]
  5. PREMARIN [Concomitant]

REACTIONS (5)
  - CONSTIPATION [None]
  - CONVULSION [None]
  - DIZZINESS [None]
  - INSOMNIA [None]
  - MICTURITION DISORDER [None]
